FAERS Safety Report 13634953 (Version 1)
Quarter: 2017Q2

REPORT INFORMATION
  Report Type: Spontaneous
  Country: US (occurrence: US)
  Receive Date: 20170608
  Receipt Date: 20170608
  Transmission Date: 20170830
  Serious: Yes (Disabling)
  Sender: FDA-Public Use
  Company Number: None

PATIENT
  Sex: Male
  Weight: 87.75 kg

DRUGS (3)
  1. STATIN [Concomitant]
     Active Substance: UNSPECIFIED INGREDIENT
  2. ONE-A-DAY MULTI-VITAMIN [Concomitant]
  3. LOPERAMIDE [Suspect]
     Active Substance: LOPERAMIDE

REACTIONS (5)
  - Chest discomfort [None]
  - Somnolence [None]
  - Malaise [None]
  - Dry mouth [None]
  - Oropharyngeal discomfort [None]
